FAERS Safety Report 8014468-5 (Version None)
Quarter: 2011Q4

REPORT INFORMATION
  Report Type: 
  Country: None (occurrence: None)
  Receive Date: 20111229
  Receipt Date: 20111222
  Transmission Date: 20120403
  Serious: Yes (Hospitalization, Other)
  Sender: FDA-Public Use
  Company Number: GXKR2009FR04454

PATIENT
  Sex: Female

DRUGS (4)
  1. CEFPODOXIME SANDOZ [Suspect]
     Indication: DYSPNOEA
     Dosage: 100 MG, BID
     Route: 048
     Dates: start: 20090122, end: 20090127
  2. TOPLEXIL [Concomitant]
     Indication: DYSPNOEA
     Route: 048
     Dates: start: 20090122, end: 20090127
  3. TOPLEXIL [Concomitant]
     Indication: COUGH
  4. CEFPODOXIME SANDOZ [Suspect]
     Indication: COUGH

REACTIONS (22)
  - HAEMORRHOIDS [None]
  - WEIGHT DECREASED [None]
  - PLATELET COUNT INCREASED [None]
  - DEPRESSION [None]
  - STRESS [None]
  - HYPOALBUMINAEMIA [None]
  - ALOPECIA [None]
  - DIARRHOEA [None]
  - ABDOMINAL PAIN [None]
  - GENERAL PHYSICAL HEALTH DETERIORATION [None]
  - ANAL SPHINCTER ATONY [None]
  - MALAISE [None]
  - PSEUDOMEMBRANOUS COLITIS [None]
  - CLOSTRIDIUM TEST POSITIVE [None]
  - NIGHTMARE [None]
  - LOSS OF CONSCIOUSNESS [None]
  - SKIN EXFOLIATION [None]
  - INSOMNIA [None]
  - FUNGAL INFECTION [None]
  - GASTROINTESTINAL MOTILITY DISORDER [None]
  - HYPOTENSION [None]
  - MUSCULOSKELETAL PAIN [None]
